FAERS Safety Report 8735146 (Version 2)
Quarter: 2012Q4

REPORT INFORMATION
  Report Type: 
  Country: US (occurrence: US)
  Receive Date: 20120821
  Receipt Date: 20120904
  Transmission Date: 20130627
  Serious: No
  Sender: FDA-Public Use
  Company Number: US-PFIZER INC-2012202403

PATIENT
  Age: 45 Year
  Sex: Female
  Weight: 73.02 kg

DRUGS (1)
  1. LIPITOR [Suspect]
     Indication: BLOOD CHOLESTEROL INCREASED
     Dosage: 20 mg, 1x/day
     Route: 048

REACTIONS (2)
  - Glycosylated haemoglobin increased [Unknown]
  - Blood cholesterol increased [Not Recovered/Not Resolved]
